FAERS Safety Report 4978916-7 (Version None)
Quarter: 2006Q2

REPORT INFORMATION
  Report Type: 
  Country: None (occurrence: None)
  Receive Date: 20060421
  Receipt Date: 20060411
  Transmission Date: 20061013
  Serious: Yes (Death, Hospitalization)
  Sender: FDA-Public Use
  Company Number: ES-JNJFOC-20060306309

PATIENT
  Age: 70 Year
  Sex: Male

DRUGS (10)
  1. REMICADE [Suspect]
     Indication: RHEUMATOID ARTHRITIS
     Dosage: 35 DOSES
     Route: 042
  2. METHOTREXATE [Concomitant]
  3. DACORTIN [Concomitant]
  4. CELEBREX [Concomitant]
  5. LEDERFOLIN [Concomitant]
  6. ULCERAL [Concomitant]
  7. DOXIUM FORTE [Concomitant]
  8. PULMICORT [Concomitant]
  9. FORADIL [Concomitant]
  10. PARACETAMOL [Concomitant]

REACTIONS (8)
  - CARDIO-RESPIRATORY ARREST [None]
  - GRAND MAL CONVULSION [None]
  - MENINGITIS PNEUMOCOCCAL [None]
  - MULTI-ORGAN FAILURE [None]
  - OTITIS MEDIA ACUTE [None]
  - SEPTIC SHOCK [None]
  - TONSILLITIS [None]
  - TRANSAMINASES INCREASED [None]
